FAERS Safety Report 18620481 (Version 1)
Quarter: 2020Q4

REPORT INFORMATION
  Report Type: Spontaneous
  Country: US (occurrence: US)
  Receive Date: 20201216
  Receipt Date: 20201216
  Transmission Date: 20210114
  Serious: Yes (Hospitalization, Other)
  Sender: FDA-Public Use
  Company Number: US-CIPLA LTD.-2020US09164

PATIENT

DRUGS (6)
  1. PEMBROLIZUMAB. [Suspect]
     Active Substance: PEMBROLIZUMAB
     Indication: OROPHARYNGEAL CANCER
  2. CARBOPLATIN. [Suspect]
     Active Substance: CARBOPLATIN
     Indication: OROPHARYNGEAL SQUAMOUS CELL CARCINOMA
     Dosage: AREA UNDER THE CURVE 5, EVERY 3 WEEKS
     Route: 065
  3. CARBOPLATIN. [Suspect]
     Active Substance: CARBOPLATIN
     Indication: OROPHARYNGEAL CANCER
  4. PEMBROLIZUMAB. [Suspect]
     Active Substance: PEMBROLIZUMAB
     Indication: OROPHARYNGEAL SQUAMOUS CELL CARCINOMA
     Dosage: 200 MILLIGRAM, INTRAVENOUS INFUSION OVER 30 MINUTES ONCE EVERY 3 WEEKS
  5. FLUOROURACIL. [Suspect]
     Active Substance: FLUOROURACIL
     Indication: OROPHARYNGEAL CANCER
  6. FLUOROURACIL. [Suspect]
     Active Substance: FLUOROURACIL
     Indication: OROPHARYNGEAL SQUAMOUS CELL CARCINOMA
     Dosage: 1000 MILLIGRAM/SQ. METER, PER DAY FOR 4 DAYS ONCE EVERY 3 WEEKS
     Route: 065

REACTIONS (10)
  - Oral pain [Recovering/Resolving]
  - Stomatitis [Recovered/Resolved]
  - Dysphagia [Recovering/Resolving]
  - Oesophagitis ulcerative [Recovering/Resolving]
  - Toxicity to various agents [Recovering/Resolving]
  - Weight decreased [Recovering/Resolving]
  - Dermatitis [Recovering/Resolving]
  - Dry mouth [Recovering/Resolving]
  - Pruritus [Recovered/Resolved]
  - Rash [Recovered/Resolved]
